FAERS Safety Report 8550278-8 (Version None)
Quarter: 2012Q3

REPORT INFORMATION
  Report Type: 
  Country: None (occurrence: None)
  Receive Date: 20120730
  Receipt Date: 20120725
  Transmission Date: 20120928
  Serious: Yes (Other)
  Sender: FDA-Public Use
  Company Number: PHHY2012AR064712

PATIENT
  Age: 82 Year
  Sex: Female

DRUGS (4)
  1. DIOVAN [Suspect]
     Dosage: 1 DF (80MG) DAILY
  2. DIOVAN [Suspect]
     Indication: HYPERTENSION
     Dosage: 80 MG DAILY
  3. DIOVAN [Suspect]
     Dosage: 1 DF (160MG) DAILY
  4. DIOVAN [Suspect]
     Dosage: 1 TABLET OF DIOVAN 80 AND 1 TABLET OF DIOVAN 160 PER DAY

REACTIONS (1)
  - INTRAOCULAR PRESSURE FLUCTUATION [None]
